FAERS Safety Report 6768173-3 (Version None)
Quarter: 2010Q2

REPORT INFORMATION
  Report Type: 
  Country: None (occurrence: None)
  Receive Date: 20100614
  Receipt Date: 20100607
  Transmission Date: 20101027
  Serious: Yes (Other)
  Sender: FDA-Public Use
  Company Number: FR-PFIZER INC-2010071292

PATIENT
  Age: 69 Year
  Sex: Male

DRUGS (1)
  1. CELEBREX [Suspect]
     Dosage: 200 MG, 2X/DAY

REACTIONS (1)
  - CHROMATURIA [None]
